FAERS Safety Report 5234040-X (Version None)
Quarter: 2007Q1

REPORT INFORMATION
  Report Type: 
  Country: None (occurrence: None)
  Receive Date: 20070208
  Receipt Date: 20070131
  Transmission Date: 20070707
  Serious: Yes (Death)
  Sender: FDA-Public Use
  Company Number: ES-BOEHRINGER INGELHEIM PHARMACEUTICALS, INC.-2007-DE-00611GD

PATIENT

DRUGS (2)
  1. NEVIRAPINE [Suspect]
     Indication: HIV INFECTION
  2. NRTI [Suspect]
     Indication: HIV INFECTION

REACTIONS (1)
  - DEATH [None]
